FAERS Safety Report 17330463 (Version 2)
Quarter: 2020Q1

REPORT INFORMATION
  Report Type: Spontaneous
  Country: US (occurrence: US)
  Receive Date: 20200128
  Receipt Date: 20200212
  Transmission Date: 20200409
  Serious: Yes (Life-Threatening, Hospitalization)
  Sender: FDA-Public Use
  Company Number: US-TEVA-2020-US-1175291

PATIENT
  Age: 60 Year
  Sex: Female

DRUGS (2)
  1. METHOTREXATE. [Suspect]
     Active Substance: METHOTREXATE
     Indication: RHEUMATOID ARTHRITIS
     Dosage: 10 MILLIGRAM DAILY; INTERVAL: DAILY INSTEAD OF WEEKLY (MEDICATION ERROR)
     Route: 065
  2. METHOTREXATE. [Suspect]
     Active Substance: METHOTREXATE
     Indication: PSORIATIC ARTHROPATHY

REACTIONS (10)
  - Sepsis [Unknown]
  - Multiple organ dysfunction syndrome [Unknown]
  - Inappropriate schedule of product administration [Unknown]
  - Ischaemic stroke [Unknown]
  - Paralysis [Unknown]
  - Overdose [Unknown]
  - Pancytopenia [Recovered/Resolved]
  - Enteritis [Unknown]
  - Hypotension [Unknown]
  - Toxicity to various agents [Unknown]
